FAERS Safety Report 8609078 (Version 4)
Quarter: 2012Q4

REPORT INFORMATION
  Report Type: 
  Country: US (occurrence: US)
  Receive Date: 20120611
  Receipt Date: 20121001
  Transmission Date: 20130627
  Serious: Yes (Hospitalization)
  Sender: FDA-Public Use
  Company Number: US-ASTRAZENECA-2012SE37165

PATIENT
  Age: 48 Year
  Sex: Female

DRUGS (14)
  1. NEXIUM [Suspect]
     Indication: GASTROOESOPHAGEAL REFLUX DISEASE
     Route: 048
  2. ATENOLOL [Suspect]
     Indication: HYPERTENSION
     Route: 048
  3. LISINOPRIL [Suspect]
     Indication: HYPERTENSION
     Route: 048
  4. LITHIUM [Suspect]
     Route: 065
  5. ASPIRIN [Concomitant]
     Route: 048
  6. HALDOL [Concomitant]
     Indication: PSYCHOTIC DISORDER
     Route: 048
  7. HALDOL [Concomitant]
     Indication: AGITATION
     Route: 048
  8. METFORMIN [Concomitant]
     Route: 048
  9. SYNTHROID [Concomitant]
     Route: 048
  10. DITROPAN [Concomitant]
     Route: 048
  11. ZOCOR [Concomitant]
     Route: 048
  12. INSULIN [Concomitant]
     Indication: TYPE 2 DIABETES MELLITUS
  13. GLIPIZIDE [Concomitant]
     Indication: TYPE 2 DIABETES MELLITUS
  14. LEVOTHYROXINE SODIUM [Concomitant]
     Indication: HYPOTHYROIDISM

REACTIONS (21)
  - Cerebral infarction [Unknown]
  - Meningitis [Unknown]
  - Encephalopathy [Recovered/Resolved]
  - Urinary tract infection [Unknown]
  - Toxicity to various agents [Unknown]
  - Renal failure [Recovered/Resolved]
  - Dyspepsia [Unknown]
  - Leukocytosis [Unknown]
  - Mental status changes [Unknown]
  - Sinus tachycardia [Unknown]
  - Gastrooesophageal reflux disease [Unknown]
  - Hyperlipidaemia [Unknown]
  - Hyperglycaemia [Unknown]
  - Visual impairment [Unknown]
  - Bradycardia [Unknown]
  - Confusional state [Unknown]
  - Agitation [Unknown]
  - Abdominal pain [Unknown]
  - Aggression [Unknown]
  - Vision blurred [Unknown]
  - Drug dose omission [Unknown]
